FAERS Safety Report 6182812-X (Version None)
Quarter: 2009Q2

REPORT INFORMATION
  Report Type: 
  Country: None (occurrence: None)
  Receive Date: 20090507
  Receipt Date: 20090427
  Transmission Date: 20091009
  Serious: Yes (Hospitalization, Other)
  Sender: FDA-Public Use
  Company Number: JP-JNJFOC-20090402928

PATIENT
  Sex: Male
  Weight: 60 kg

DRUGS (15)
  1. REMICADE [Suspect]
     Dosage: 200 MG
     Route: 042
  2. REMICADE [Suspect]
     Dosage: 8 INFUSIONS ON UNSPECIFIED DATES
     Route: 042
  3. REMICADE [Suspect]
     Indication: RHEUMATOID ARTHRITIS
     Dosage: 200 MG
     Route: 042
  4. RHEUMATREX [Suspect]
     Route: 048
  5. RHEUMATREX [Suspect]
     Route: 048
  6. RHEUMATREX [Suspect]
     Indication: RHEUMATOID ARTHRITIS
     Route: 048
  7. TAKEPRON [Concomitant]
     Indication: GASTRIC ULCER
     Route: 048
  8. ROHYPNOL [Concomitant]
     Indication: INSOMNIA
     Route: 048
  9. FOLIAMIN [Concomitant]
     Indication: RHEUMATOID ARTHRITIS
     Route: 048
  10. SELTOUCH [Concomitant]
  11. PREDNISOLONE [Concomitant]
  12. PREDNISOLONE [Concomitant]
  13. PREDNISOLONE [Concomitant]
     Dosage: GRADUALLY DECREASE
  14. ISONIAZID [Concomitant]
  15. FEXOFENADINE [Concomitant]
     Indication: PREMEDICATION

REACTIONS (6)
  - COMPUTERISED TOMOGRAM THORAX ABNORMAL [None]
  - COUGH [None]
  - ENCEPHALITIS VIRAL [None]
  - INFUSION RELATED REACTION [None]
  - MENINGITIS [None]
  - NERVOUS SYSTEM DISORDER [None]
